FAERS Safety Report 14925815 (Version 4)
Quarter: 2019Q3

REPORT INFORMATION
  Report Type: Report from Study
  Country: US (occurrence: US)
  Receive Date: 20180522
  Receipt Date: 20190722
  Transmission Date: 20191004
  Serious: Yes (Hospitalization)
  Sender: FDA-Public Use
  Company Number: US-ACTELION-A-NJ2018-172348

PATIENT
  Sex: Female
  Weight: 50.79 kg

DRUGS (3)
  1. OPSUMIT [Suspect]
     Active Substance: MACITENTAN
     Indication: PULMONARY ARTERIAL HYPERTENSION
     Dosage: 10 MG, QD
     Route: 048
  2. AMLODIPINE [Concomitant]
     Active Substance: AMLODIPINE BESYLATE
     Dosage: UNK
     Dates: end: 20181120
  3. ADEMPAS [Concomitant]
     Active Substance: RIOCIGUAT

REACTIONS (12)
  - Arthritis [Unknown]
  - Gait disturbance [Unknown]
  - Blood pressure systolic decreased [Unknown]
  - Blood pressure systolic increased [Unknown]
  - Balance disorder [Unknown]
  - Mobility decreased [Unknown]
  - Gait inability [Unknown]
  - Skin laceration [Unknown]
  - Dizziness [Unknown]
  - Fall [Unknown]
  - Syncope [Unknown]
  - Haemorrhage [Unknown]

NARRATIVE: CASE EVENT DATE: 2018
